FAERS Safety Report 17278854 (Version 2)
Quarter: 2020Q1

REPORT INFORMATION
  Report Type: Spontaneous
  Country: PT (occurrence: PT)
  Receive Date: 20200116
  Receipt Date: 20200131
  Transmission Date: 20200409
  Serious: Yes (Hospitalization, Other)
  Sender: FDA-Public Use
  Company Number: PT-GILEAD-2020-0446897

PATIENT
  Age: 75 Year
  Sex: Male

DRUGS (2)
  1. ZYDELIG [Suspect]
     Active Substance: IDELALISIB
     Dosage: 150 MG, BID
     Route: 065
     Dates: start: 202001
  2. ZYDELIG [Suspect]
     Active Substance: IDELALISIB
     Indication: CHRONIC LYMPHOCYTIC LEUKAEMIA
     Dosage: UNK
     Route: 065
     Dates: start: 2019

REACTIONS (3)
  - Respiratory tract infection [Recovered/Resolved]
  - Haemolytic anaemia [Recovered/Resolved]
  - Thalassaemia beta [Recovered/Resolved]

NARRATIVE: CASE EVENT DATE: 2019
